FAERS Safety Report 19462587 (Version 1)
Quarter: 2021Q2

REPORT INFORMATION
  Report Type: Spontaneous
  Country: FR (occurrence: FR)
  Receive Date: 20210625
  Receipt Date: 20210625
  Transmission Date: 20210717
  Serious: Yes (Hospitalization)
  Sender: FDA-Public Use
  Company Number: FR-ALLERGAN-2123734US

PATIENT
  Sex: Female

DRUGS (4)
  1. CITALOPRAM HYDROBROMIDE ? BP [Interacting]
     Active Substance: CITALOPRAM HYDROBROMIDE
     Dosage: CITALOPRAM OVERDOSE : UNKNOWN DOSE
     Route: 065
  2. AMIODARONE [Interacting]
     Active Substance: AMIODARONE
     Indication: ATRIAL FIBRILLATION
     Dosage: ACTUAL: 200 MG 5/7 DAY
     Route: 065
     Dates: start: 20190601, end: 20201120
  3. CITALOPRAM HYDROBROMIDE ? BP [Suspect]
     Active Substance: CITALOPRAM HYDROBROMIDE
     Indication: DEPRESSION
     Dosage: 20 MG, QD
     Route: 065
     Dates: start: 20201118, end: 20201119
  4. DIGOXINE NATIVELLE [Suspect]
     Active Substance: DIGOXIN
     Indication: ATRIAL FIBRILLATION
     Route: 065
     Dates: start: 20190601, end: 20201120

REACTIONS (5)
  - Drug interaction [Unknown]
  - Atrioventricular block [Recovered/Resolved]
  - Vomiting [Recovered/Resolved]
  - Bradycardia [Recovered/Resolved]
  - Accidental overdose [Unknown]

NARRATIVE: CASE EVENT DATE: 20201119
